FAERS Safety Report 18991669 (Version 1)
Quarter: 2021Q1

REPORT INFORMATION
  Report Type: Spontaneous
  Country: US (occurrence: US)
  Receive Date: 20210309
  Receipt Date: 20210309
  Transmission Date: 20210420
  Serious: Yes (Death)
  Sender: FDA-Public Use
  Company Number: None

PATIENT
  Age: 45 Year
  Sex: Female

DRUGS (2)
  1. PANTOPRAZOLE SOD DR 40MG TORRENT PHARMACEUTICALS [Suspect]
     Active Substance: PANTOPRAZOLE SODIUM
     Indication: ORGAN TRANSPLANT
     Route: 048
     Dates: start: 20200415
  2. PREDNISONE 5MG MYLAN [Suspect]
     Active Substance: PREDNISONE
     Indication: ORGAN TRANSPLANT
     Route: 048
     Dates: start: 20200415

REACTIONS (1)
  - COVID-19 [None]

NARRATIVE: CASE EVENT DATE: 20210119
